FAERS Safety Report 7363264-0 (Version None)
Quarter: 2011Q1

REPORT INFORMATION
  Report Type: 
  Country: None (occurrence: None)
  Receive Date: 20110321
  Receipt Date: 20110311
  Transmission Date: 20110831
  Serious: Yes (Other)
  Sender: FDA-Public Use
  Company Number: US-AMGEN-USASP2011013947

PATIENT
  Age: 73 Year
  Sex: Male

DRUGS (2)
  1. OXYGEN [Concomitant]
     Dosage: UNK
     Dates: start: 20110101
  2. VECTIBIX [Suspect]
     Indication: COLORECTAL CANCER METASTATIC
     Dosage: UNK
     Dates: start: 20110304

REACTIONS (1)
  - HAEMOPTYSIS [None]
